FAERS Safety Report 9013024 (Version 1)
Quarter: 2013Q1

REPORT INFORMATION
  Report Type: Spontaneous
  Country: US (occurrence: US)
  Receive Date: 20130114
  Receipt Date: 20130114
  Transmission Date: 20140127
  Serious: Yes (Disabling)
  Sender: FDA-Public Use
  Company Number: US-009507513-1301XAA003508

PATIENT
  Age: 24 Year
  Sex: Female

DRUGS (5)
  1. MONTELUKAST SODIUM [Suspect]
     Indication: ASTHMA
     Dosage: UNK UNK, UNKNOWN
     Route: 048
  2. SYMBICORT [Suspect]
     Dosage: 30 DOSES/1 DF TWO TIMES A DAY
     Route: 055
  3. ERYTHROCIN LACTOBIONATE [Suspect]
     Route: 048
  4. THEOPHYLLINE [Suspect]
     Route: 048
  5. HOKUNALIN [Suspect]
     Route: 062

REACTIONS (3)
  - Myalgia [Unknown]
  - Sensation of heaviness [Unknown]
  - Muscular weakness [Unknown]
